FAERS Safety Report 6441794-3 (Version None)
Quarter: 2009Q4

REPORT INFORMATION
  Report Type: 
  Country: None (occurrence: None)
  Receive Date: 20091116
  Receipt Date: 20091102
  Transmission Date: 20100525
  Serious: Yes (Death, Hospitalization, Other)
  Sender: FDA-Public Use
  Company Number: ES-GENENTECH-293803

PATIENT
  Age: 14 Year
  Sex: Female

DRUGS (6)
  1. RITUXIMAB [Suspect]
     Indication: EWING'S SARCOMA
     Route: 065
  2. CYCLOSPORINE [Suspect]
     Indication: EWING'S SARCOMA
     Route: 065
  3. ETANERCEPT [Suspect]
     Indication: EWING'S SARCOMA
     Route: 065
  4. CASPOFUNGIN ACETATE [Suspect]
     Indication: ASPERGILLOSIS
     Route: 065
  5. AMPHOTERICIN B [Suspect]
     Indication: ASPERGILLOSIS
     Route: 065
  6. VORICONAZOLE [Suspect]
     Indication: ASPERGILLOSIS
     Route: 065

REACTIONS (4)
  - ASPERGILLOSIS [None]
  - DEATH [None]
  - NEUTROPENIA [None]
  - TRANSPLANT FAILURE [None]
